FAERS Safety Report 25418591 (Version 1)
Quarter: 2025Q2

REPORT INFORMATION
  Report Type: Spontaneous
  Country: DE (occurrence: DE)
  Receive Date: 20250610
  Receipt Date: 20250610
  Transmission Date: 20250717
  Serious: Yes (Hospitalization, Other)
  Sender: SANDOZ
  Company Number: DE-SANDOZ-SDZ2025DE039783

PATIENT
  Sex: Male

DRUGS (9)
  1. ACEMETACIN [Suspect]
     Active Substance: ACEMETACIN
     Route: 065
     Dates: start: 20170301
  2. ACEMETACIN [Suspect]
     Active Substance: ACEMETACIN
     Indication: Product used for unknown indication
     Route: 065
     Dates: start: 20170301, end: 20191101
  3. ACEMETACIN [Suspect]
     Active Substance: ACEMETACIN
     Route: 065
     Dates: start: 20200727, end: 20211215
  4. COSENTYX [Suspect]
     Active Substance: SECUKINUMAB
     Indication: Psoriatic arthropathy
     Route: 065
     Dates: start: 20180802
  5. COSENTYX [Suspect]
     Active Substance: SECUKINUMAB
     Route: 065
     Dates: start: 20180802, end: 20191115
  6. COSENTYX [Suspect]
     Active Substance: SECUKINUMAB
     Route: 065
     Dates: start: 20200115, end: 20200115
  7. IBUPROFEN [Suspect]
     Active Substance: IBUPROFEN
     Indication: Product used for unknown indication
     Route: 065
     Dates: start: 20191101
  8. IBUPROFEN [Suspect]
     Active Substance: IBUPROFEN
     Route: 065
     Dates: start: 20230405
  9. IBUPROFEN [Suspect]
     Active Substance: IBUPROFEN
     Route: 065
     Dates: start: 20230405

REACTIONS (5)
  - Suicidal ideation [Unknown]
  - Alcohol poisoning [Unknown]
  - Depression [Unknown]
  - Depression [Unknown]
  - Depression [Unknown]

NARRATIVE: CASE EVENT DATE: 20200812
